FAERS Safety Report 4323442-1 (Version None)
Quarter: 2004Q1

REPORT INFORMATION
  Report Type: 
  Country: None (occurrence: None)
  Receive Date: 20040325
  Receipt Date: 19981117
  Transmission Date: 20041129
  Serious: Yes (Hospitalization, Disabling, Congenital Anomaly)
  Sender: FDA-Public Use
  Company Number: US-ROCHE-109381

PATIENT

DRUGS (6)
  1. ACCUTANE [Suspect]
     Indication: ACNE
     Dates: start: 19830119, end: 19830201
  2. ACCUTANE [Suspect]
     Dates: start: 19831024
  3. MACRODANTIN [Concomitant]
     Dates: start: 19830120, end: 19830130
  4. DEMEROL [Concomitant]
  5. TALWIN [Concomitant]
  6. BENADRYL [Concomitant]

REACTIONS (75)
  - ANION GAP INCREASED [None]
  - ANOMALY OF EXTERNAL EAR CONGENITAL [None]
  - APGAR SCORE LOW [None]
  - APHASIA [None]
  - AUTISM [None]
  - BLOOD CREATINE PHOSPHOKINASE INCREASED [None]
  - BREECH DELIVERY [None]
  - BREECH PRESENTATION [None]
  - CARDIAC MURMUR [None]
  - CARDIOMEGALY [None]
  - CEREBRAL HAEMORRHAGE [None]
  - CEREBRAL PALSY [None]
  - CEREBRAL VENTRICLE DILATATION [None]
  - CHOKING [None]
  - CONGENITAL ANOMALY [None]
  - CONGENITAL CENTRAL NERVOUS SYSTEM ANOMALY [None]
  - CONGENITAL EYE DISORDER [None]
  - CONGENITAL HYDROCEPHALUS [None]
  - CONGENITAL JAW MALFORMATION [None]
  - CONJUNCTIVITIS [None]
  - COORDINATION ABNORMAL [None]
  - CORNEAL LIGHT REFLEX TEST ABNORMAL [None]
  - CORRECTIVE LENS USER [None]
  - COUGH [None]
  - DEAFNESS [None]
  - DEAFNESS CONGENITAL [None]
  - DEVELOPMENTAL DELAY [None]
  - DIFFICULTY IN WALKING [None]
  - DYSPHAGIA [None]
  - EAR MALFORMATION [None]
  - ENCEPHALOPATHY [None]
  - EYE DISORDER [None]
  - EYELID PTOSIS [None]
  - FACIAL DYSMORPHISM [None]
  - FACIAL PARESIS [None]
  - FEEDING DISORDER [None]
  - FORCEPS DELIVERY [None]
  - GINGIVAL DISORDER [None]
  - GROWTH RETARDATION [None]
  - HAEMORRHAGE [None]
  - HYDROCEPHALUS [None]
  - HYPERBILIRUBINAEMIA [None]
  - HYPERBILIRUBINAEMIA NEONATAL [None]
  - HYPERTELORISM OF ORBIT [None]
  - HYPOTONIA NEONATAL [None]
  - HYPOTRICHOSIS [None]
  - ILL-DEFINED DISORDER [None]
  - KYPHOSIS [None]
  - LACRIMATION INCREASED [None]
  - LETHARGY [None]
  - LIMB MALFORMATION [None]
  - LOWER LIMB DEFORMITY [None]
  - MATERNAL DRUGS AFFECTING FOETUS [None]
  - MENTAL RETARDATION SEVERITY UNSPECIFIED [None]
  - MICROCEPHALY [None]
  - MICROGNATHIA [None]
  - MUSCLE DISORDER [None]
  - NASAL DISORDER [None]
  - ORAL SOFT TISSUE DISORDER [None]
  - OTITIS MEDIA [None]
  - OTITIS MEDIA CHRONIC [None]
  - PHARYNGOLARYNGEAL PAIN [None]
  - PULMONARY CONGESTION [None]
  - PYREXIA [None]
  - RALES [None]
  - RASH [None]
  - RASH PUSTULAR [None]
  - SKULL MALFORMATION [None]
  - STRABISMUS [None]
  - STRABISMUS CONGENITAL [None]
  - TARDIVE DYSKINESIA [None]
  - TONSILLITIS [None]
  - URINE ANALYSIS ABNORMAL [None]
  - WEIGHT DECREASED [None]
  - WEIGHT GAIN POOR [None]
